FAERS Safety Report 18312140 (Version 1)
Quarter: 2020Q3

REPORT INFORMATION
  Report Type: Spontaneous
  Country: US (occurrence: US)
  Receive Date: 20200925
  Receipt Date: 20200925
  Transmission Date: 20201103
  Serious: Yes (Other)
  Sender: FDA-Public Use
  Company Number: None

PATIENT
  Age: 73 Year
  Sex: Female
  Weight: 63 kg

DRUGS (10)
  1. MARINOL 10MG [Concomitant]
  2. CAPECITABINE. [Suspect]
     Active Substance: CAPECITABINE
     Indication: HEPATIC CANCER
     Dosage: ?          OTHER FREQUENCY:BID X14DAYS, 7 OFF;?
     Route: 048
     Dates: start: 20200811, end: 20200910
  3. TYLENOL [Concomitant]
     Active Substance: ACETAMINOPHEN
  4. PROBIOTIC [Concomitant]
     Active Substance: PROBIOTICS NOS
  5. DRONABINOL 10MG [Concomitant]
  6. PERCOCET [Concomitant]
     Active Substance: ACETAMINOPHEN\OXYCODONE HYDROCHLORIDE
  7. ZOFRAN [Concomitant]
     Active Substance: ONDANSETRON HYDROCHLORIDE
  8. ADVIL 200MG [Concomitant]
  9. PROCHLORPERAZINE 10MG [Concomitant]
  10. LEVOTHYROXINE 25MCG [Concomitant]
     Active Substance: LEVOTHYROXINE

REACTIONS (1)
  - General physical health deterioration [None]

NARRATIVE: CASE EVENT DATE: 20200910
